FAERS Safety Report 18852171 (Version 1)
Quarter: 2021Q1

REPORT INFORMATION
  Report Type: Spontaneous
  Country: US (occurrence: US)
  Receive Date: 20210204
  Receipt Date: 20210204
  Transmission Date: 20210420
  Serious: Yes (Other)
  Sender: FDA-Public Use
  Company Number: None

PATIENT
  Age: 45 Year
  Sex: Female
  Weight: 74.84 kg

DRUGS (1)
  1. GENERIC ESTRADIOL PATCH 0.05MG [Suspect]
     Active Substance: ESTRADIOL

REACTIONS (6)
  - Depressed mood [None]
  - Muscle tightness [None]
  - Hot flush [None]
  - Arthropathy [None]
  - Tendon disorder [None]
  - Palpitations [None]
